FAERS Safety Report 6149598-6 (Version None)
Quarter: 2009Q2

REPORT INFORMATION
  Report Type: 
  Country: None (occurrence: None)
  Receive Date: 20090409
  Receipt Date: 20090327
  Transmission Date: 20091009
  Serious: Yes (Other)
  Sender: FDA-Public Use
  Company Number: US-ROCHE-624720

PATIENT
  Sex: Female
  Weight: 75.8 kg

DRUGS (1)
  1. CAPECITABINE [Suspect]
     Dosage: FREQUENCY:3TABLETS IN MORNING AND 3TABLETS IN THE EVENING;1WEEK ON AND 1WEEK OFF;TEMPORARILY STOPPED
     Route: 065
     Dates: start: 20081230

REACTIONS (1)
  - PANCREATIC CARCINOMA [None]
